FAERS Safety Report 7781932-3 (Version None)
Quarter: 2011Q3

REPORT INFORMATION
  Report Type: 
  Country: None (occurrence: None)
  Receive Date: 20110927
  Receipt Date: 20110330
  Transmission Date: 20111222
  Serious: No
  Sender: FDA-Public Use
  Company Number: US-BAYER-2011-027999

PATIENT
  Age: 9 Year
  Sex: Male

DRUGS (2)
  1. UNKNOWN [Concomitant]
     Dosage: UNK UNK, PRN
     Route: 055
  2. ULTRAVIST 150 [Suspect]
     Indication: COMPUTERISED TOMOGRAM ABDOMEN
     Dosage: 44 ML, ONCE
     Route: 042
     Dates: start: 20110330, end: 20110330

REACTIONS (2)
  - COUGH [None]
  - THROAT IRRITATION [None]
